FAERS Safety Report 13386180 (Version 6)
Quarter: 2017Q2

REPORT INFORMATION
  Report Type: Spontaneous
  Country: JP (occurrence: JP)
  Receive Date: 20170330
  Receipt Date: 20170605
  Transmission Date: 20170830
  Serious: Yes (Death, Hospitalization, Other)
  Sender: FDA-Public Use
  Company Number: JP-SA-2017SA051131

PATIENT
  Age: 81 Year
  Sex: Male
  Weight: 59 kg

DRUGS (10)
  1. ALOXI [Concomitant]
     Active Substance: PALONOSETRON HYDROCHLORIDE
     Route: 042
     Dates: start: 20161025, end: 20161025
  2. GRAN [Concomitant]
     Active Substance: FILGRASTIM
     Route: 042
  3. ELPLAT [Suspect]
     Active Substance: OXALIPLATIN
     Indication: GASTRIC CANCER
     Dosage: FORM-INFUSION SOLUTION (OXALIPLATIN) INJECTION
     Route: 041
     Dates: start: 20161025, end: 20161025
  4. TS-1 [Suspect]
     Active Substance: GIMERACIL\OTERACIL\TEGAFUR
     Route: 065
  5. EMEND [Concomitant]
     Active Substance: APREPITANT
     Route: 065
     Dates: start: 20161025, end: 20161027
  6. DECADRON [Concomitant]
     Active Substance: DEXAMETHASONE
     Route: 042
  7. ELPLAT [Suspect]
     Active Substance: OXALIPLATIN
     Indication: GASTRIC CANCER
     Dosage: FORM-INFUSION SOLUTION (OXALIPLATIN) INJECTION
     Route: 041
     Dates: start: 20161108, end: 20161108
  8. POLARAMINE [Concomitant]
     Active Substance: DEXCHLORPHENIRAMINE MALEATE
     Route: 042
  9. MAXIPIME [Concomitant]
     Active Substance: CEFEPIME HYDROCHLORIDE
     Route: 042
  10. HEPARIN SODIUM. [Concomitant]
     Active Substance: HEPARIN SODIUM
     Route: 042
     Dates: start: 20161110, end: 20161201

REACTIONS (8)
  - Malaise [Unknown]
  - Vomiting [Unknown]
  - Disseminated intravascular coagulation [Fatal]
  - Nausea [Unknown]
  - Febrile neutropenia [Recovered/Resolved]
  - Trousseau^s syndrome [Not Recovered/Not Resolved]
  - Gastrointestinal haemorrhage [Fatal]
  - Pneumonia [Fatal]

NARRATIVE: CASE EVENT DATE: 20161103
